FAERS Safety Report 15210594 (Version 2)
Quarter: 2018Q3

REPORT INFORMATION
  Report Type: Report from Study
  Country: None (occurrence: AR)
  Receive Date: 20180728
  Receipt Date: 20180817
  Transmission Date: 20181010
  Serious: Yes (Hospitalization, Other)
  Sender: FDA-Public Use
  Company Number: AR-ABBVIE-18K-007-2434470-00

PATIENT
  Age: 22 Year
  Sex: Female

DRUGS (1)
  1. HUMIRA [Suspect]
     Active Substance: ADALIMUMAB
     Indication: HIDRADENITIS
     Route: 058
     Dates: start: 20170722, end: 201710

REACTIONS (7)
  - Skin graft [Unknown]
  - Skin injury [Recovering/Resolving]
  - Skin graft rejection [Recovering/Resolving]
  - Skin exfoliation [Recovering/Resolving]
  - Hidradenitis [Recovering/Resolving]
  - Hidradenitis [Not Recovered/Not Resolved]
  - Hidradenitis [Recovering/Resolving]

NARRATIVE: CASE EVENT DATE: 201711
